FAERS Safety Report 11378941 (Version 1)
Quarter: 2015Q3

REPORT INFORMATION
  Report Type: Spontaneous
  Country: US (occurrence: None)
  Receive Date: 20150812
  Receipt Date: 20150812
  Transmission Date: 20151125
  Serious: Yes (Hospitalization)
  Sender: FDA-Public Use
  Company Number: DEP_03334_2015

PATIENT
  Sex: Female
  Weight: 88.91 kg

DRUGS (5)
  1. CAMBIA [Suspect]
     Active Substance: DICLOFENAC POTASSIUM
     Indication: MIGRAINE
     Route: 048
     Dates: start: 201402
  2. FIORICET [Concomitant]
     Active Substance: ACETAMINOPHEN\BUTALBITAL\CAFFEINE
  3. TOPAMAX [Concomitant]
     Active Substance: TOPIRAMATE
  4. TRAMADOL. [Concomitant]
     Active Substance: TRAMADOL
  5. IMITREX [Concomitant]
     Active Substance: SUMATRIPTAN\SUMATRIPTAN SUCCINATE

REACTIONS (8)
  - Weight decreased [None]
  - Electrocardiogram QT prolonged [None]
  - Breast cancer [None]
  - Headache [None]
  - Myocardial infarction [None]
  - Visual impairment [None]
  - Diplopia [None]
  - Memory impairment [None]
